FAERS Safety Report 9661339 (Version 1)
Quarter: 2013Q4

REPORT INFORMATION
  Report Type: Spontaneous
  Country: US (occurrence: US)
  Receive Date: 20131031
  Receipt Date: 20131031
  Transmission Date: 20140711
  Serious: No
  Sender: FDA-Public Use
  Company Number: US-PURDUE-USA-2010-0073523

PATIENT
  Sex: Male

DRUGS (3)
  1. OXYCODONE HCL IMMEDIATE RELEASE (91-490) [Suspect]
     Indication: PAIN
     Dosage: UNK
     Dates: start: 201009
  2. VALIUM                             /00017001/ [Concomitant]
     Dosage: 5 MG, HS
  3. VICODIN HP [Concomitant]
     Dosage: UNK, QID

REACTIONS (3)
  - Pain [Unknown]
  - Drug effect decreased [Unknown]
  - Insomnia [Unknown]
